FAERS Safety Report 10307847 (Version 3)
Quarter: 2014Q3

REPORT INFORMATION
  Report Type: Spontaneous
  Country: NL (occurrence: None)
  Receive Date: 20140711
  Receipt Date: 20140801
  Transmission Date: 20150326
  Serious: Yes (Other)
  Sender: FDA-Public Use
  Company Number: SYM-2014-21590

PATIENT
  Age: 66 Year
  Sex: Female

DRUGS (3)
  1. CODEINE PHOSPHATE (CODEINE PHOSPHATE) [Concomitant]
     Active Substance: CODEINE PHOSPHATE
  2. VISUDYNE [Suspect]
     Active Substance: VERTEPORFIN
     Indication: MACULAR DEGENERATION
     Dosage: 4.8 ML PLUS 25.2 ML GLUCOSE, INTRAVENOUS
     Route: 042
     Dates: start: 20140522, end: 20140522
  3. BRUFEN [Concomitant]
     Active Substance: IBUPROFEN

REACTIONS (9)
  - Musculoskeletal stiffness [None]
  - Product quality issue [None]
  - Skin discolouration [None]
  - Injection site induration [None]
  - Infusion site reaction [None]
  - Infusion site induration [None]
  - Pain in extremity [None]
  - Skin hypertrophy [None]
  - Hypoaesthesia [None]

NARRATIVE: CASE EVENT DATE: 20140522
